FAERS Safety Report 6667291-8 (Version None)
Quarter: 2010Q2

REPORT INFORMATION
  Report Type: 
  Country: None (occurrence: None)
  Receive Date: 20100401
  Receipt Date: 20100401
  Transmission Date: 20101027
  Serious: Yes (Other)
  Sender: FDA-Public Use
  Company Number: None

PATIENT
  Age: 40 Year
  Sex: Female
  Weight: 71.2147 kg

DRUGS (2)
  1. EFFEXOR [Suspect]
     Indication: ANXIETY
     Dosage: ONE PILL DAILY PO
     Route: 048
     Dates: start: 20060822, end: 20100215
  2. EFFEXOR [Suspect]
     Indication: STRESS
     Dosage: ONE PILL DAILY PO
     Route: 048
     Dates: start: 20060822, end: 20100215

REACTIONS (16)
  - AGGRESSION [None]
  - ANGER [None]
  - DISTURBANCE IN ATTENTION [None]
  - DIZZINESS [None]
  - DRUG DOSE OMISSION [None]
  - EMOTIONAL DISORDER [None]
  - FEAR [None]
  - FEELING ABNORMAL [None]
  - IMPAIRED WORK ABILITY [None]
  - MALAISE [None]
  - NAUSEA [None]
  - PARAESTHESIA [None]
  - PRODUCT QUALITY ISSUE [None]
  - VERTIGO [None]
  - VISION BLURRED [None]
  - WITHDRAWAL SYNDROME [None]
